FAERS Safety Report 9380359 (Version 1)
Quarter: 2013Q3

REPORT INFORMATION
  Report Type: Report from Study
  Country: US (occurrence: US)
  Receive Date: 20130702
  Receipt Date: 20130702
  Transmission Date: 20140515
  Serious: Yes (Other)
  Sender: FDA-Public Use
  Company Number: US-BAYER-2013-078948

PATIENT
  Age: 76 Year
  Sex: 0

DRUGS (8)
  1. ASPIRIN [Suspect]
     Indication: ANTIPLATELET THERAPY
     Dosage: 325 MG DAILY
  2. ASPIRIN [Suspect]
     Indication: ANTICOAGULANT THERAPY
  3. WARFARIN [Suspect]
     Indication: ANTIPLATELET THERAPY
  4. WARFARIN [Suspect]
     Indication: ANTICOAGULANT THERAPY
  5. HEPARIN [Suspect]
     Indication: ANTIPLATELET THERAPY
     Dosage: 5000 U, UNK
     Route: 042
  6. HEPARIN [Suspect]
     Indication: ANTICOAGULANT THERAPY
     Dosage: 5000 U, BID
     Route: 058
  7. PROTAMINE [Suspect]
     Indication: ANTIPLATELET THERAPY
  8. PROTAMINE [Suspect]
     Indication: ANTICOAGULANT THERAPY

REACTIONS (3)
  - Extradural haematoma [Recovering/Resolving]
  - Muscular weakness [Recovering/Resolving]
  - Hypoaesthesia [Recovering/Resolving]
